FAERS Safety Report 19650473 (Version 2)
Quarter: 2021Q3

REPORT INFORMATION
  Report Type: Other
  Country: DE (occurrence: DE)
  Receive Date: 20210803
  Receipt Date: 20210910
  Transmission Date: 20211014
  Serious: Yes (Hospitalization, Other)
  Sender: FDA-Public Use
  Company Number: DE-ROCHE-2812132

PATIENT
  Sex: Female

DRUGS (4)
  1. RAMIPRIL. [Concomitant]
     Active Substance: RAMIPRIL
  2. PANTOPRAZOLE [Concomitant]
     Active Substance: PANTOPRAZOLE
  3. NOVALGIN (METAMIZOLE SODIUM) [Concomitant]
     Active Substance: METAMIZOLE SODIUM
  4. OCREVUS [Suspect]
     Active Substance: OCRELIZUMAB
     Indication: RELAPSING-REMITTING MULTIPLE SCLEROSIS
     Dosage: THEN 600 MG EVERY 168 DAYS
     Route: 042
     Dates: start: 20210127

REACTIONS (10)
  - Abdominal pain upper [Recovered/Resolved]
  - Autoimmune disorder [Unknown]
  - Hypoaesthesia [Recovering/Resolving]
  - Ovarian cyst [Unknown]
  - Gastritis [Unknown]
  - Intra-abdominal fluid collection [Unknown]
  - Arthritis [Unknown]
  - Cyst rupture [Unknown]
  - Hypertension [Recovered/Resolved]
  - Cholelithiasis [Recovered/Resolved]

NARRATIVE: CASE EVENT DATE: 20210411
